FAERS Safety Report 6492865-7 (Version None)
Quarter: 2009Q4

REPORT INFORMATION
  Report Type: 
  Country: None (occurrence: None)
  Receive Date: 20091214
  Receipt Date: 20091204
  Transmission Date: 20100525
  Serious: Yes (Other)
  Sender: FDA-Public Use
  Company Number: US-SANOFI-AVENTIS-2009SA007817

PATIENT
  Age: 74 Year
  Sex: Male

DRUGS (13)
  1. LANTUS [Suspect]
     Indication: TYPE 2 DIABETES MELLITUS
     Dosage: 8 UNITS IN AM AND 6 UNITS IN PM
     Route: 058
     Dates: start: 20060101
  2. OPTICLICK [Suspect]
     Indication: TYPE 2 DIABETES MELLITUS
     Dates: start: 20060101
  3. STARLIX [Concomitant]
  4. JANUVIA [Concomitant]
  5. ACYCLOVIR [Concomitant]
  6. ALLOPURINOL [Concomitant]
  7. PRAVASTATIN [Concomitant]
  8. URINARY ANTISPASMODICS [Concomitant]
  9. TERAZOSIN HCL [Concomitant]
  10. MULTI-VITAMINS [Concomitant]
  11. ASPIRIN [Concomitant]
  12. IRON [Concomitant]
  13. LISINOPRIL [Concomitant]

REACTIONS (4)
  - BLOOD GLUCOSE DECREASED [None]
  - FALL [None]
  - LOSS OF CONSCIOUSNESS [None]
  - TOOTH LOSS [None]
